FAERS Safety Report 23523945 (Version 1)
Quarter: 2024Q1

REPORT INFORMATION
  Report Type: Report from Study
  Country: US (occurrence: US)
  Receive Date: 20240214
  Receipt Date: 20240214
  Transmission Date: 20240410
  Serious: Yes (Hospitalization)
  Sender: FDA-Public Use
  Company Number: US-Eisai-EC-2024-159502

PATIENT
  Age: 65 Year
  Sex: Female
  Weight: 104 kg

DRUGS (28)
  1. LENVIMA [Suspect]
     Active Substance: LENVATINIB
     Indication: Thyroid cancer
     Route: 048
     Dates: start: 20230110, end: 20230328
  2. LENVIMA [Suspect]
     Active Substance: LENVATINIB
     Route: 048
     Dates: start: 20230405, end: 202304
  3. LENVIMA [Suspect]
     Active Substance: LENVATINIB
     Route: 048
     Dates: end: 202311
  4. BETAMETHASONE [Concomitant]
     Active Substance: BETAMETHASONE\BETAMETHASONE DIPROPIONATE
  5. ATORVASTATIN [Concomitant]
     Active Substance: ATORVASTATIN
  6. AMLODIPINE [Concomitant]
     Active Substance: AMLODIPINE BESYLATE
  7. LOSARTAN [Concomitant]
     Active Substance: LOSARTAN
  8. TRAZODONE [Concomitant]
     Active Substance: TRAZODONE HYDROCHLORIDE
  9. CALCIUM [Concomitant]
     Active Substance: CALCIUM
  10. CHOLECALCIFEROL [Concomitant]
     Active Substance: CHOLECALCIFEROL
  11. SYNTHROID [Concomitant]
     Active Substance: LEVOTHYROXINE SODIUM
  12. PROMETHAZINE [Concomitant]
     Active Substance: PROMETHAZINE HYDROCHLORIDE
  13. AMMONIUM LACTATE [Concomitant]
     Active Substance: AMMONIUM LACTATE
  14. CLONIDINE [Concomitant]
     Active Substance: CLONIDINE
  15. FUROSEMIDE [Concomitant]
     Active Substance: FUROSEMIDE
  16. POTASSIUM CHLORIDE [Concomitant]
     Active Substance: POTASSIUM CHLORIDE
  17. PREGABALIN [Concomitant]
     Active Substance: PREGABALIN
  18. PLAQUENIL [Concomitant]
     Active Substance: HYDROXYCHLOROQUINE SULFATE
  19. XARELTO [Concomitant]
     Active Substance: RIVAROXABAN
  20. OMEPRAZOLE [Concomitant]
     Active Substance: OMEPRAZOLE
  21. CHOLECALCIFEROL [Concomitant]
     Active Substance: CHOLECALCIFEROL
     Dosage: CRYSTALS
  22. HYSINGLA ER [Concomitant]
     Active Substance: HYDROCODONE BITARTRATE
  23. ACETAMINOPHEN\HYDROCODONE [Concomitant]
     Active Substance: ACETAMINOPHEN\HYDROCODONE
  24. KLONOPIN [Concomitant]
     Active Substance: CLONAZEPAM
  25. PREDNISONE [Concomitant]
     Active Substance: PREDNISONE
  26. PROBIOTICS NOS [Concomitant]
     Active Substance: PROBIOTICS NOS
  27. PRILOSEC [Concomitant]
     Active Substance: OMEPRAZOLE MAGNESIUM
  28. DULOXETINE [Concomitant]
     Active Substance: DULOXETINE

REACTIONS (3)
  - Pneumonia [Unknown]
  - Oxygen saturation abnormal [Unknown]
  - Asthenia [Unknown]

NARRATIVE: CASE EVENT DATE: 20231101
